FAERS Safety Report 10228137 (Version 1)
Quarter: 2014Q2

REPORT INFORMATION
  Report Type: Spontaneous
  Country: FR (occurrence: FR)
  Receive Date: 20140610
  Receipt Date: 20140610
  Transmission Date: 20141212
  Serious: Yes (Hospitalization)
  Sender: FDA-Public Use
  Company Number: FR-JNJFOC-20140603031

PATIENT
  Age: 66 Year
  Sex: Male

DRUGS (10)
  1. XARELTO [Suspect]
     Indication: PRODUCT USED FOR UNKNOWN INDICATION
     Route: 048
     Dates: start: 20140206, end: 20140326
  2. LASILIX [Suspect]
     Indication: PRODUCT USED FOR UNKNOWN INDICATION
     Route: 065
     Dates: end: 20140326
  3. SEROPLEX [Suspect]
     Indication: PRODUCT USED FOR UNKNOWN INDICATION
     Route: 048
  4. INEXIUM [Suspect]
     Indication: PRODUCT USED FOR UNKNOWN INDICATION
     Route: 048
  5. SPECIAFOLDINE [Concomitant]
     Route: 065
  6. AMLODIPINE [Concomitant]
     Route: 065
  7. TARDYFERON [Concomitant]
     Route: 065
  8. SOTALOL [Concomitant]
     Route: 065
  9. BEFIZAL [Concomitant]
     Route: 065
  10. DIFFU K [Concomitant]
     Route: 065

REACTIONS (1)
  - Hyponatraemia [Recovering/Resolving]
